FAERS Safety Report 7038278-0 (Version None)
Quarter: 2010Q4

REPORT INFORMATION
  Report Type: 
  Country: None (occurrence: None)
  Receive Date: 20101011
  Receipt Date: 20091204
  Transmission Date: 20110411
  Serious: Yes (Other)
  Sender: FDA-Public Use
  Company Number: US-PFIZER INC-2009282968

PATIENT
  Sex: Male
  Weight: 75 kg

DRUGS (10)
  1. NEURONTIN [Suspect]
     Indication: HERPES ZOSTER
     Dosage: 600 MG, 2X/DAY FOR 2 DAYS
     Route: 048
     Dates: end: 20090901
  2. NEURONTIN [Suspect]
     Indication: NEURALGIA
     Dosage: 300 MG, 3X/DAY
     Route: 048
     Dates: start: 20090801, end: 20091001
  3. TOPROL-XL [Concomitant]
     Dosage: 100 MG, UNK
     Route: 048
  4. HYDROCHLOROTHIAZIDE [Concomitant]
     Dosage: 25 MG, UNK
     Route: 048
  5. ACIPHEX [Concomitant]
     Dosage: 20 MG, UNK
     Route: 048
  6. LIPITOR [Concomitant]
     Dosage: 10 MG, UNK
     Route: 048
  7. VOLMAX [Concomitant]
     Dosage: 20 MG, UNK
  8. LEXAPRO [Concomitant]
     Dosage: 10 MG, UNK
     Route: 048
  9. AVAPRO [Concomitant]
     Dosage: 300 MG, UNK
     Route: 048
  10. NORVASC [Concomitant]
     Dosage: 5 MG, UNK
     Route: 048

REACTIONS (3)
  - ANXIETY [None]
  - HALLUCINATION [None]
  - PANIC ATTACK [None]
